FAERS Safety Report 4444373-2 (Version None)
Quarter: 2004Q3

REPORT INFORMATION
  Report Type: 
  Country: None (occurrence: None)
  Receive Date: 20040802
  Receipt Date: 20040326
  Transmission Date: 20050211
  Serious: No
  Sender: FDA-Public Use
  Company Number: 2004-114337-NL

PATIENT
  Age: 26 Year
  Sex: Female
  Weight: 59.1 kg

DRUGS (1)
  1. NUVARING [Suspect]
     Dosage: DF DAILY VAGINAL
     Route: 067
     Dates: start: 20031201

REACTIONS (2)
  - METRORRHAGIA [None]
  - UTERINE DISORDER [None]
